FAERS Safety Report 4569044-3 (Version None)
Quarter: 2005Q1

REPORT INFORMATION
  Report Type: 
  Country: None (occurrence: None)
  Receive Date: 20050127
  Receipt Date: 20050127
  Transmission Date: 20050727
  Serious: No
  Sender: FDA-Public Use
  Company Number: None

PATIENT
  Age: 56 Year
  Sex: Male

DRUGS (2)
  1. DILANTIN [Suspect]
     Indication: CONVULSION
     Dosage: THREE CAPSULES Q 12 HRS # 200
  2. DILANTIN [Suspect]
     Indication: METASTASES TO CENTRAL NERVOUS SYSTEM
     Dosage: THREE CAPSULES Q 12 HRS # 200

REACTIONS (2)
  - CONVULSION [None]
  - PHARMACEUTICAL PRODUCT COMPLAINT [None]
